FAERS Safety Report 7283187-5 (Version None)
Quarter: 2011Q1

REPORT INFORMATION
  Report Type: 
  Country: None (occurrence: None)
  Receive Date: 20110209
  Receipt Date: 20110127
  Transmission Date: 20110831
  Serious: Yes (Other)
  Sender: FDA-Public Use
  Company Number: PHHY2011US07184

PATIENT
  Age: 52 Year
  Sex: Female
  Weight: 106.98 kg

DRUGS (7)
  1. VIVELLE-DOT [Suspect]
     Indication: OESTROGEN REPLACEMENT THERAPY
     Dosage: 0.05 MG
     Route: 062
     Dates: end: 20110105
  2. PREMARIN [Suspect]
     Indication: OESTROGEN REPLACEMENT THERAPY
     Dosage: 1 DF, QD, 0.625 MG
     Route: 048
     Dates: start: 19880101, end: 20090101
  3. AVAPRO [Concomitant]
     Dosage: 300 MG DAILY
  4. ENALAPRIL MALEATE [Concomitant]
     Dosage: 300 MG DAILY
  5. VIVELLE-DOT [Suspect]
     Dosage: 0.1 MG
     Route: 062
  6. LEVOTHROID [Concomitant]
     Dosage: 50 U DAILY
  7. ACETYLSALICYLIC ACID [Concomitant]
     Dosage: UNK

REACTIONS (17)
  - SKIN DISCOLOURATION [None]
  - ALOPECIA [None]
  - CHEST PAIN [None]
  - BLOOD URINE PRESENT [None]
  - BREAST DISCOLOURATION [None]
  - FALL [None]
  - THROMBOSIS [None]
  - HAIR TEXTURE ABNORMAL [None]
  - MYOCARDIAL INFARCTION [None]
  - PAIN [None]
  - SCAR [None]
  - LUNG DISORDER [None]
  - HOT FLUSH [None]
  - BLADDER DISORDER [None]
  - WEIGHT INCREASED [None]
  - HYPERTENSION [None]
  - HAIR GROWTH ABNORMAL [None]
